FAERS Safety Report 4867663-8 (Version None)
Quarter: 2005Q4

REPORT INFORMATION
  Report Type: 
  Country: None (occurrence: None)
  Receive Date: 20051222
  Receipt Date: 20051222
  Transmission Date: 20060501
  Serious: Yes (Hospitalization)
  Sender: FDA-Public Use
  Company Number: None

PATIENT
  Age: 56 Year
  Sex: Female
  Weight: 130 kg

DRUGS (3)
  1. PHENYTOIN [Suspect]
     Indication: CONVULSION PROPHYLAXIS
     Dosage: 200MG Q12H   IV BOLUS
     Route: 040
  2. ABX [Concomitant]
  3. DILANTIN [Concomitant]

REACTIONS (2)
  - PYREXIA [None]
  - RASH [None]
